FAERS Safety Report 4699696-9 (Version None)
Quarter: 2005Q2

REPORT INFORMATION
  Report Type: 
  Country: None (occurrence: None)
  Receive Date: 20050624
  Receipt Date: 20050622
  Transmission Date: 20051028
  Serious: Yes (Hospitalization)
  Sender: FDA-Public Use
  Company Number: US-ABBOTT-05P-163-0303795-00

PATIENT
  Sex: Male

DRUGS (2)
  1. HUMIRA [Suspect]
     Indication: RHEUMATOID ARTHRITIS
     Route: 058
     Dates: start: 20030701, end: 20050301
  2. COUMADIN [Concomitant]
     Indication: AORTIC STENOSIS
     Route: 048
     Dates: start: 19970101

REACTIONS (3)
  - CARDIAC VALVE DISEASE [None]
  - ENDOCARDITIS [None]
  - SUBDURAL HAEMATOMA [None]
